FAERS Safety Report 4901583-5 (Version None)
Quarter: 2006Q1

REPORT INFORMATION
  Report Type: 
  Country: None (occurrence: None)
  Receive Date: 20060201
  Receipt Date: 20060201
  Transmission Date: 20060701
  Serious: Yes (Hospitalization)
  Sender: FDA-Public Use
  Company Number: None

PATIENT
  Age: 42 Year
  Sex: Male
  Weight: 76.2043 kg

DRUGS (1)
  1. ACETAMINOPHEN [Suspect]
     Indication: ARTHRALGIA
     Dosage: 20 TABLETS PO IN 3 DAYS
     Route: 048

REACTIONS (3)
  - DEPRESSION [None]
  - INTENTIONAL DRUG MISUSE [None]
  - OVERDOSE [None]
